FAERS Safety Report 24856112 (Version 1)
Quarter: 2025Q1

REPORT INFORMATION
  Report Type: Spontaneous
  Country: GB (occurrence: GB)
  Receive Date: 20250117
  Receipt Date: 20250117
  Transmission Date: 20250408
  Serious: Yes (Other)
  Sender: MYLAN
  Company Number: None

PATIENT
  Age: 86 Year
  Sex: Male
  Weight: 92 kg

DRUGS (3)
  1. DOXYCYCLINE [Suspect]
     Active Substance: DOXYCYCLINE
     Indication: Product used for unknown indication
     Dosage: 1 DOSAGE FORM, QD (TWO TO BE TAKEN ON THE FIRST DAY THEN ONE TO BE TAKEN EACH DAY)
     Route: 065
     Dates: start: 20241104, end: 20241227
  2. Adjuvanted quadrivalent influenza vaccine [Concomitant]
     Indication: Osteoarthritis
     Route: 065
     Dates: start: 20241205, end: 20241205
  3. CLARITHROMYCIN [Concomitant]
     Active Substance: CLARITHROMYCIN
     Dosage: 1 DOSAGE FORM, BID (ONE TO BE TAKEN TWICE A DAY, STOP SIMVAASTATIN WHILST TAKING THIS)
     Route: 065
     Dates: start: 20241222

REACTIONS (1)
  - Panic attack [Not Recovered/Not Resolved]
